FAERS Safety Report 20465930 (Version 6)
Quarter: 2022Q1

REPORT INFORMATION
  Report Type: Report from Study
  Country: JP (occurrence: None)
  Receive Date: 20220212
  Receipt Date: 20220304
  Transmission Date: 20220423
  Serious: Yes (Hospitalization)
  Sender: FDA-Public Use
  Company Number: JP-ROCHE-3019911

PATIENT
  Age: 41 Year
  Sex: Female
  Weight: 57.4 kg

DRUGS (7)
  1. ENTRECTINIB [Suspect]
     Active Substance: ENTRECTINIB
     Indication: Non-small cell lung cancer metastatic
     Dosage: LAST DOSE OF STUDY DRUG ADMINISTERED PRIOR AE WAS 200 MG AND LAST DOSE OF STUDY DRUG ADMIN PRIOR SAE
     Route: 048
     Dates: start: 20191213
  2. LOXOPROFEN [Concomitant]
     Active Substance: LOXOPROFEN
     Indication: Cancer pain
     Route: 048
     Dates: start: 20191128
  3. HEPARINOID [Concomitant]
     Route: 061
     Dates: start: 20191219
  4. CALCIUM CARBONATE\CHOLECALCIFEROL\MAGNESIUM CARBONATE [Concomitant]
     Active Substance: CALCIUM CARBONATE\CHOLECALCIFEROL\MAGNESIUM CARBONATE
     Indication: Hypocalcaemia
     Dosage: 2 TABLET
     Route: 048
     Dates: start: 20191224, end: 20220107
  5. SODIUM HYALURONATE [Concomitant]
     Active Substance: HYALURONATE SODIUM
     Indication: Dry eye
     Route: 047
     Dates: start: 20191226
  6. PREDNISOLONE [Concomitant]
     Active Substance: PREDNISOLONE
     Indication: Contrast media allergy
     Dates: start: 20220214, end: 20220214
  7. METHYLPREDNISOLONE [Concomitant]
     Active Substance: METHYLPREDNISOLONE
     Indication: Contrast media allergy
     Dates: start: 20220215, end: 20220215

REACTIONS (1)
  - COVID-19 [Recovering/Resolving]

NARRATIVE: CASE EVENT DATE: 20220202
